FAERS Safety Report 4495100-4 (Version None)
Quarter: 2004Q4

REPORT INFORMATION
  Report Type: 
  Country: None (occurrence: None)
  Receive Date: 20041104
  Receipt Date: 20041104
  Transmission Date: 20050328
  Serious: Yes (Life-Threatening)
  Sender: FDA-Public Use
  Company Number: None

PATIENT
  Age: 35 Year
  Sex: Female
  Weight: 83.4619 kg

DRUGS (7)
  1. ZONEGRAN [Suspect]
     Indication: NEUROPATHIC PAIN
     Dosage: 25MG    DAILY     ORAL
     Route: 048
     Dates: start: 20040317, end: 20040603
  2. ATENOLOL [Concomitant]
  3. CLONAZEPAM [Concomitant]
  4. FAMOTIDINE [Concomitant]
  5. LAMICTAL [Concomitant]
  6. LORAZEPAM [Concomitant]
  7. PERCOCET [Concomitant]

REACTIONS (1)
  - ANGIONEUROTIC OEDEMA [None]
